FAERS Safety Report 4583165-0 (Version None)
Quarter: 2005Q1

REPORT INFORMATION
  Report Type: 
  Country: None (occurrence: None)
  Receive Date: 20050215
  Receipt Date: 20050207
  Transmission Date: 20050727
  Serious: Yes (Hospitalization)
  Sender: FDA-Public Use
  Company Number: US-ABBOTT-05P-163-0289861-00

PATIENT
  Sex: Female

DRUGS (1)
  1. DEPAKOTE ER [Suspect]
     Indication: AFFECTIVE DISORDER
     Route: 048
     Dates: start: 20041201, end: 20041201

REACTIONS (3)
  - EMBOLIC STROKE [None]
  - ENCEPHALOPATHY [None]
  - MENTAL STATUS CHANGES [None]
